FAERS Safety Report 8388874-3 (Version None)
Quarter: 2012Q2

REPORT INFORMATION
  Report Type: 
  Country: None (occurrence: None)
  Receive Date: 20120528
  Receipt Date: 20120517
  Transmission Date: 20120825
  Serious: No
  Sender: FDA-Public Use
  Company Number: US-BIOGENIDEC-2012BI009105

PATIENT
  Age: 46 Year
  Sex: Female

DRUGS (4)
  1. TYSABRI [Suspect]
     Indication: MULTIPLE SCLEROSIS
     Route: 042
     Dates: start: 20101214
  2. BENADRYL [Concomitant]
     Indication: PREMEDICATION
  3. ACYCLOVIR [Concomitant]
     Indication: ANTIVIRAL PROPHYLAXIS
  4. AVONEX [Concomitant]
     Indication: MULTIPLE SCLEROSIS
     Route: 030

REACTIONS (6)
  - HERPES ZOSTER [None]
  - EYE PAIN [None]
  - IMMUNE SYSTEM DISORDER [None]
  - WHITE BLOOD CELL COUNT DECREASED [None]
  - URTICARIA [None]
  - RASH [None]
